FAERS Safety Report 9456872 (Version 3)
Quarter: 2013Q3

REPORT INFORMATION
  Report Type: Spontaneous
  Country: JP (occurrence: JP)
  Receive Date: 20130813
  Receipt Date: 20130909
  Transmission Date: 20140515
  Serious: Yes (Death, Life-Threatening, Hospitalization)
  Sender: FDA-Public Use
  Company Number: JP-ABBOTT-13P-087-1119185-00

PATIENT
  Age: 75 Year
  Sex: Male
  Weight: 63.2 kg

DRUGS (18)
  1. HUMIRA [Suspect]
     Indication: RHEUMATOID ARTHRITIS
     Route: 058
     Dates: start: 20090521, end: 20130620
  2. PROGRAF [Suspect]
     Indication: RHEUMATOID ARTHRITIS
     Dates: start: 20090427, end: 20110208
  3. PROGRAF [Suspect]
     Dates: start: 20110209, end: 20110726
  4. PROGRAF [Suspect]
     Dates: start: 20110727, end: 20130721
  5. REBAMIPIDE [Concomitant]
     Indication: PRODUCT USED FOR UNKNOWN INDICATION
  6. LEVOTHYROXINE SODIUM HYDRATE [Concomitant]
     Indication: HYPOTHYROIDISM
     Route: 048
  7. LOSARTAN POTASSIUM [Concomitant]
     Indication: HYPERTENSION
     Route: 048
     Dates: start: 20130418
  8. LANSOPRAZOLE [Concomitant]
     Indication: PRODUCT USED FOR UNKNOWN INDICATION
  9. AMPLODIPINE BESILATE [Concomitant]
     Indication: HYPERTENSION
     Route: 048
     Dates: start: 20130418
  10. PREDNISOLONE [Concomitant]
     Indication: RHEUMATOID ARTHRITIS
     Dates: start: 20090227, end: 20091007
  11. PREDNISOLONE [Concomitant]
     Dates: start: 20091008, end: 20091104
  12. PREDNISOLONE [Concomitant]
     Dates: start: 20091105, end: 20091202
  13. PREDNISOLONE [Concomitant]
     Dates: start: 20091203, end: 20100210
  14. PREDNISOLONE [Concomitant]
     Dates: start: 20100211, end: 20100407
  15. PREDNISOLONE [Concomitant]
     Dates: start: 20100408, end: 20100602
  16. PREDNISOLONE [Concomitant]
     Dates: start: 20100603, end: 20100728
  17. PREDNISOLONE [Concomitant]
     Dates: start: 20100729, end: 20101229
  18. PREDNISOLONE [Concomitant]
     Dates: start: 20101230, end: 20120502

REACTIONS (2)
  - Respiratory failure [Fatal]
  - Interstitial lung disease [Unknown]
